FAERS Safety Report 13306908 (Version 1)
Quarter: 2017Q1

REPORT INFORMATION
  Report Type: Spontaneous
  Country: US (occurrence: US)
  Receive Date: 20170308
  Receipt Date: 20170308
  Transmission Date: 20170428
  Serious: No
  Sender: FDA-Public Use
  Company Number: US-AKORN PHARMACEUTICALS-2016AKN00374

PATIENT
  Sex: Female

DRUGS (3)
  1. CLEOCIN PLEDGETS [Concomitant]
     Dosage: UNK, 2X/DAY
  2. PANOXYL BPO WASH 10% [Concomitant]
  3. MYORISAN [Suspect]
     Active Substance: ISOTRETINOIN
     Indication: ACNE
     Dosage: 60 MG, 1X/DAY
     Route: 048
     Dates: start: 20160112, end: 20160515

REACTIONS (1)
  - Eye disorder [Unknown]

NARRATIVE: CASE EVENT DATE: 2016
